FAERS Safety Report 9878899 (Version 2)
Quarter: 2014Q1

REPORT INFORMATION
  Report Type: Spontaneous
  Country: US (occurrence: US)
  Receive Date: 20140206
  Receipt Date: 20140206
  Transmission Date: 20141002
  Serious: No
  Sender: FDA-Public Use
  Company Number: US-ALLERGAN-1309884US

PATIENT
  Sex: Male

DRUGS (3)
  1. BOTOX COSMETIC [Suspect]
     Indication: SKIN WRINKLING
     Dosage: 40 UNITS, UNK
     Route: 030
     Dates: start: 20130625, end: 20130625
  2. BOTOX COSMETIC [Suspect]
     Indication: SKIN WRINKLING
     Dosage: 30 UNITS, SINGLE
     Dates: start: 20130625, end: 20130625
  3. BOTOX COSMETIC [Suspect]
     Indication: SKIN WRINKLING
     Dosage: 2 UNK, UNK
     Route: 030

REACTIONS (5)
  - Fatigue [Not Recovered/Not Resolved]
  - Migraine [Unknown]
  - Brow ptosis [Unknown]
  - Facial paresis [Unknown]
  - Headache [Not Recovered/Not Resolved]
